FAERS Safety Report 15120156 (Version 1)
Quarter: 2018Q3

REPORT INFORMATION
  Report Type: Spontaneous
  Country: NO (occurrence: NO)
  Receive Date: 20180709
  Receipt Date: 20180709
  Transmission Date: 20181010
  Serious: Yes (Other)
  Sender: FDA-Public Use
  Company Number: NO-GLAXOSMITHKLINE-NO2018117042

PATIENT
  Age: 62 Year
  Sex: Female
  Weight: 60 kg

DRUGS (1)
  1. ADARTREL [Suspect]
     Active Substance: ROPINIROLE
     Indication: RESTLESS LEGS SYNDROME
     Dosage: 1 MG, QD
     Route: 065
     Dates: start: 201507

REACTIONS (2)
  - Condition aggravated [Not Recovered/Not Resolved]
  - Dependence [Unknown]

NARRATIVE: CASE EVENT DATE: 2016
